FAERS Safety Report 16669836 (Version 1)
Quarter: 2019Q3

REPORT INFORMATION
  Report Type: Spontaneous
  Country: CA (occurrence: CA)
  Receive Date: 20190805
  Receipt Date: 20190805
  Transmission Date: 20191004
  Serious: Yes (Other)
  Sender: FDA-Public Use
  Company Number: CA-PFIZER INC-2019332622

PATIENT
  Sex: Female

DRUGS (5)
  1. ALEVE [Suspect]
     Active Substance: NAPROXEN SODIUM
  2. METHOTREXATE SODIUM. [Suspect]
     Active Substance: METHOTREXATE SODIUM
     Route: 065
  3. HYDROXYCHLOROQUINE [Suspect]
     Active Substance: HYDROXYCHLOROQUINE
  4. GOLD [Suspect]
     Active Substance: GOLD
  5. MOTRIN [Suspect]
     Active Substance: IBUPROFEN

REACTIONS (2)
  - Loss of consciousness [Unknown]
  - Dizziness [Unknown]
